FAERS Safety Report 25690775 (Version 1)
Quarter: 2025Q3

REPORT INFORMATION
  Report Type: Spontaneous
  Country: US (occurrence: US)
  Receive Date: 20250818
  Receipt Date: 20250818
  Transmission Date: 20251021
  Serious: Yes (Other)
  Sender: APELLIS PHARMACEUTICALS
  Company Number: US-APELLIS-2025-APL-0001557

PATIENT

DRUGS (7)
  1. PEGCETACOPLAN [Suspect]
     Active Substance: PEGCETACOPLAN
     Indication: Immunosuppression
  2. THYMOGLOBULIN [Concomitant]
     Active Substance: LAPINE T-LYMPHOCYTE IMMUNE GLOBULIN
     Indication: Immunosuppression
  3. BELATACEPT [Concomitant]
     Active Substance: BELATACEPT
     Indication: Immunosuppression
  4. RITUXIMAB-PVVR [Concomitant]
     Active Substance: RITUXIMAB-PVVR
     Indication: Immunosuppression
  5. MYCOPHENOLATE MOFETIL [Concomitant]
     Active Substance: MYCOPHENOLATE MOFETIL
     Indication: Immunosuppression
  6. TACROLIMUS [Concomitant]
     Active Substance: TACROLIMUS
     Indication: Immunosuppression
  7. ECULIZUMAB [Concomitant]
     Active Substance: ECULIZUMAB
     Indication: Immunosuppression

REACTIONS (8)
  - Complications of transplanted kidney [Unknown]
  - Bacteraemia [Unknown]
  - Renal tubular necrosis [Unknown]
  - Renal cortical necrosis [Unknown]
  - Renal haemorrhage [Unknown]
  - Pyrexia [Unknown]
  - Off label use [Unknown]
  - Haemodynamic instability [Unknown]
